FAERS Safety Report 15171644 (Version 3)
Quarter: 2019Q1

REPORT INFORMATION
  Report Type: Spontaneous
  Country: CH (occurrence: CH)
  Receive Date: 20180720
  Receipt Date: 20190102
  Transmission Date: 20190417
  Serious: Yes (Hospitalization)
  Sender: FDA-Public Use
  Company Number: CH-BAUSCH-BL-2018-019477

PATIENT
  Sex: Female

DRUGS (2)
  1. ELYFEM 20 [Concomitant]
     Active Substance: ETHINYL ESTRADIOL\LEVONORGESTREL
     Indication: PRODUCT USED FOR UNKNOWN INDICATION
  2. ALDARA [Suspect]
     Active Substance: IMIQUIMOD
     Indication: ANOGENITAL WARTS
     Route: 061
     Dates: start: 20180618, end: 20180625

REACTIONS (11)
  - Vulvar erosion [Recovering/Resolving]
  - Vulvovaginal pain [Recovering/Resolving]
  - Vaginal discharge [Recovering/Resolving]
  - Chills [Unknown]
  - Vulvovaginal burning sensation [Unknown]
  - Anogenital warts [Unknown]
  - Vulval disorder [Recovering/Resolving]
  - Vaginitis gardnerella [Unknown]
  - Condition aggravated [Unknown]
  - Superinfection bacterial [Unknown]
  - Ureaplasma infection [Unknown]

NARRATIVE: CASE EVENT DATE: 2018
